FAERS Safety Report 9502043 (Version 2)
Quarter: 2013Q3

REPORT INFORMATION
  Report Type: Spontaneous
  Country: US (occurrence: US)
  Receive Date: 20130905
  Receipt Date: 20130905
  Transmission Date: 20140515
  Serious: Yes (Other)
  Sender: FDA-Public Use
  Company Number: US-GILEAD-2013-0079982

PATIENT
  Age: 67 Year
  Sex: Female

DRUGS (3)
  1. LETAIRIS [Suspect]
     Indication: PULMONARY ARTERIAL HYPERTENSION
     Dosage: 5 MG, QD
     Dates: start: 20130306
  2. LETAIRIS [Suspect]
     Indication: PULMONARY HYPERTENSION
  3. CARDIZEM                           /00489701/ [Concomitant]

REACTIONS (3)
  - Cardiac flutter [Unknown]
  - Malaise [Unknown]
  - Asthenia [Unknown]
